FAERS Safety Report 6937571-7 (Version None)
Quarter: 2010Q3

REPORT INFORMATION
  Report Type: 
  Country: None (occurrence: None)
  Receive Date: 20100823
  Receipt Date: 20100810
  Transmission Date: 20110219
  Serious: Yes (Other)
  Sender: FDA-Public Use
  Company Number: US-ELI_LILLY_AND_COMPANY-US201008005158

PATIENT
  Sex: Female

DRUGS (8)
  1. FORTEO [Suspect]
     Indication: OSTEOPOROSIS
     Dosage: 20 UG, DAILY (1/D)
  2. CHANTIX [Concomitant]
     Dosage: 1 MG, 2/D
  3. AMITRIPTYLINE HCL [Concomitant]
     Dosage: 25 MG, DAILY (1/D)
  4. SERTRALINE HYDROCHLORIDE [Concomitant]
     Dosage: 50 MG, DAILY (1/D)
  5. HYDROCODONE BITARTRATE [Concomitant]
     Dosage: UNK D/F, EVERY 4 HRS
  6. MULTI-VITAMIN [Concomitant]
  7. CALCIUM [Concomitant]
     Dosage: 1500 MG, UNKNOWN
  8. LORAZEPAM [Concomitant]
     Dosage: UNK, EACH EVENING

REACTIONS (2)
  - BONE DENSITY DECREASED [None]
  - SPINAL FUSION SURGERY [None]
